FAERS Safety Report 5422279-X (Version None)
Quarter: 2007Q3

REPORT INFORMATION
  Report Type: 
  Country: None (occurrence: None)
  Receive Date: 20070820
  Receipt Date: 20070820
  Transmission Date: 20080115
  Serious: Yes (Other)
  Sender: FDA-Public Use
  Company Number: None

PATIENT
  Age: 78 Year
  Sex: Female
  Weight: 63.5036 kg

DRUGS (1)
  1. BEVACIZUMAB -AVASTIN- 400MG/VIAL GENENTECH [Suspect]
     Indication: COLORECTAL CANCER METASTATIC
     Dosage: 10MG/KG Q2WKS IV
     Route: 042
     Dates: start: 20070401, end: 20070701

REACTIONS (1)
  - REVERSIBLE POSTERIOR LEUKOENCEPHALOPATHY SYNDROME [None]
